FAERS Safety Report 13301228 (Version 1)
Quarter: 2017Q1

REPORT INFORMATION
  Report Type: Spontaneous
  Country: US (occurrence: US)
  Receive Date: 20170307
  Receipt Date: 20170307
  Transmission Date: 20170428
  Serious: No
  Sender: FDA-Public Use
  Company Number: US-PFIZER INC-2017090982

PATIENT
  Age: 51 Year
  Sex: Female

DRUGS (1)
  1. IBUPROFEN. [Suspect]
     Active Substance: IBUPROFEN
     Indication: MUSCLE RELAXANT THERAPY
     Dosage: 800 MG, 4X/DAY

REACTIONS (3)
  - Pain [Unknown]
  - Product use issue [Unknown]
  - Drug ineffective for unapproved indication [Unknown]
